FAERS Safety Report 16142556 (Version 40)
Quarter: 2022Q4

REPORT INFORMATION
  Report Type: Report from Study
  Country: GB (occurrence: GB)
  Receive Date: 20190401
  Receipt Date: 20221128
  Transmission Date: 20230113
  Serious: Yes (Death, Hospitalization, Other)
  Sender: FDA-Public Use
  Company Number: GB-EMA-DD-20181127-N9C8J7-154750

PATIENT
  Age: 58 Year
  Sex: Female

DRUGS (200)
  1. TRASTUZUMAB [Suspect]
     Active Substance: TRASTUZUMAB
     Indication: HER2 positive breast cancer
     Dosage: 172 MILLIGRAM, Q3W/DOSE REDUCED
     Route: 042
     Dates: start: 20151201, end: 20151221
  2. TRASTUZUMAB [Suspect]
     Active Substance: TRASTUZUMAB
     Indication: Breast cancer metastatic
     Dosage: 300 MILLIGRAMQ3W
     Route: 042
  3. TRASTUZUMAB [Suspect]
     Active Substance: TRASTUZUMAB
     Dosage: 350 MILLIGRAM, LOADING DOSE
     Route: 042
     Dates: start: 20150601, end: 20150601
  4. TRASTUZUMAB [Suspect]
     Active Substance: TRASTUZUMAB
     Dosage: 140 MILLIGRAM, Q3W
     Route: 042
     Dates: start: 20151201, end: 20160215
  5. TRASTUZUMAB [Suspect]
     Active Substance: TRASTUZUMAB
     Dosage: 1 DF, Q3W,DOSE REDUCED
     Route: 042
  6. TRASTUZUMAB [Suspect]
     Active Substance: TRASTUZUMAB
     Dosage: UNK, Q3W, DOSE REDUCED
     Route: 042
  7. TRASTUZUMAB [Suspect]
     Active Substance: TRASTUZUMAB
     Dosage: 300 MILLIGRAM, Q3W (DOSE MODIFIED)
     Route: 042
     Dates: start: 20150601, end: 20151101
  8. TRASTUZUMAB [Suspect]
     Active Substance: TRASTUZUMAB
     Dosage: Q3W, DOSE REDUCED, 230
     Route: 042
  9. TRASTUZUMAB [Suspect]
     Active Substance: TRASTUZUMAB
     Dosage: 300 MILLIGRAM, Q3W
     Route: 042
  10. TRASTUZUMAB [Suspect]
     Active Substance: TRASTUZUMAB
     Dosage: 172 MILLIGRAM, Q3W
     Route: 042
     Dates: start: 20151201, end: 20151221
  11. TRASTUZUMAB [Suspect]
     Active Substance: TRASTUZUMAB
     Dosage: 140 MILLIGRAMQ3W
     Route: 042
     Dates: start: 20160215, end: 20160215
  12. TRASTUZUMAB [Suspect]
     Active Substance: TRASTUZUMAB
     Dosage: 140 MILLIGRAM, Q3W
     Route: 042
     Dates: start: 20151201, end: 20160215
  13. TRASTUZUMAB [Suspect]
     Active Substance: TRASTUZUMAB
     Dosage: 140 MILLIGRAM, Q3W
     Route: 042
  14. TRASTUZUMAB [Suspect]
     Active Substance: TRASTUZUMAB
     Dosage: 350 MILLIGRAM (350 MILLIGRAM)
     Route: 042
  15. TRASTUZUMAB [Suspect]
     Active Substance: TRASTUZUMAB
     Dosage: 300 MILLIGRAM, Q3W (DOSE MODIFIED)
     Route: 042
     Dates: start: 20150629, end: 20151102
  16. TRASTUZUMAB [Suspect]
     Active Substance: TRASTUZUMAB
     Dosage: 350 MILLIGRAM, LOADING DOSE
     Route: 042
     Dates: end: 20150601
  17. TRASTUZUMAB [Suspect]
     Active Substance: TRASTUZUMAB
     Dosage: 172 MG, Q3W/01-DEC-2018
     Route: 042
     Dates: end: 20181221
  18. TRASTUZUMAB [Suspect]
     Active Substance: TRASTUZUMAB
     Dosage: 1 MILLIGRAM, Q3W (DOSE REDUCED)
     Route: 042
  19. TRASTUZUMAB [Suspect]
     Active Substance: TRASTUZUMAB
     Dosage: 1 DOSAGE FORM, Q3W,DOSE REDUCED
     Route: 042
  20. TRASTUZUMAB [Suspect]
     Active Substance: TRASTUZUMAB
     Dosage: 172 MG, Q3W/01-DEC-2015
     Route: 042
     Dates: end: 20151221
  21. TRASTUZUMAB [Suspect]
     Active Substance: TRASTUZUMAB
     Dosage: 840 MILLIGRAM, Q3W
     Route: 042
  22. TRASTUZUMAB [Suspect]
     Active Substance: TRASTUZUMAB
     Dosage: 840 MILLIGRAM, UNK, LOADING DOSE;
     Route: 042
  23. TRASTUZUMAB [Suspect]
     Active Substance: TRASTUZUMAB
     Dosage: 420 MG, Q3W, TARGETED THERAPY
     Route: 042
  24. TRASTUZUMAB [Suspect]
     Active Substance: TRASTUZUMAB
     Dosage: TARGETED THERAPY (DOSE FORM: 230
     Route: 042
     Dates: end: 20151102
  25. TRASTUZUMAB [Suspect]
     Active Substance: TRASTUZUMAB
     Dosage: DOSE REDUCED/01-JUN-2015
     Route: 042
     Dates: end: 20150601
  26. TRASTUZUMAB [Suspect]
     Active Substance: TRASTUZUMAB
     Dosage: 300 MG, Q3W/02-NOV-2015
     Route: 042
     Dates: end: 20151102
  27. TRASTUZUMAB [Suspect]
     Active Substance: TRASTUZUMAB
     Dosage: 172 MILLIGRAM, Q3W
     Route: 042
  28. TRASTUZUMAB [Suspect]
     Active Substance: TRASTUZUMAB
     Dosage: UNK UNK, Q3W, DOSE REDUCED
     Route: 042
  29. TRASTUZUMAB [Suspect]
     Active Substance: TRASTUZUMAB
     Dosage: 140 MILLIGRAM, Q3W/01-DEC-2015
     Route: 042
     Dates: end: 20160215
  30. TRASTUZUMAB [Suspect]
     Active Substance: TRASTUZUMAB
     Dosage: 300 MILLIGRAM, Q3W
     Route: 042
     Dates: end: 20151102
  31. TRASTUZUMAB [Suspect]
     Active Substance: TRASTUZUMAB
     Dosage: 350 MILLIGRAM (350 MILLIGRAM)
     Route: 042
  32. TRASTUZUMAB [Suspect]
     Active Substance: TRASTUZUMAB
     Dosage: UNK UNK, Q3W
     Route: 042
  33. TRASTUZUMAB [Suspect]
     Active Substance: TRASTUZUMAB
     Dosage: 140 MILLIGRAM, Q3W, 140 MILLIGRAM
     Route: 042
     Dates: end: 20160215
  34. TRASTUZUMAB [Suspect]
     Active Substance: TRASTUZUMAB
     Dosage: 172 MILLIGRAM, Q3W/01-DEC-2015
     Route: 042
     Dates: end: 20151221
  35. TRASTUZUMAB [Suspect]
     Active Substance: TRASTUZUMAB
     Dosage: 350 MILLIGRAM, LOADING DOSE
     Route: 042
     Dates: end: 20150601
  36. TRASTUZUMAB [Suspect]
     Active Substance: TRASTUZUMAB
     Dosage: 172 MILLIGRAM, Q3W/01-DEC-2015
     Route: 042
     Dates: end: 20151221
  37. TRASTUZUMAB [Suspect]
     Active Substance: TRASTUZUMAB
     Dosage: 140 MILLIGRAM, Q3W/15-FEB-2016
     Route: 042
     Dates: end: 20160215
  38. TRASTUZUMAB [Suspect]
     Active Substance: TRASTUZUMAB
     Dosage: UNK, DOSE REDUCED, 230
     Route: 042
  39. TRASTUZUMAB [Suspect]
     Active Substance: TRASTUZUMAB
     Dosage: 300 MG, Q3W (300 MG, EVERY 3 WEEKS) 29-JUN-2015
     Route: 042
     Dates: end: 20151102
  40. TRASTUZUMAB [Suspect]
     Active Substance: TRASTUZUMAB
     Dosage: 300 MILLIGRAM (300 MG, 3 WEEK)
     Route: 042
     Dates: start: 20150629, end: 20150629
  41. CAPECITABINE [Suspect]
     Active Substance: CAPECITABINE
     Indication: HER2 positive breast cancer
     Dosage: 1500 MILLIGRAM, QD
     Route: 048
     Dates: start: 20170210, end: 20170728
  42. CAPECITABINE [Suspect]
     Active Substance: CAPECITABINE
     Indication: Breast cancer metastatic
     Dosage: 3000 MILLIGRAM, QD
     Route: 048
     Dates: start: 20170210, end: 20170728
  43. CAPECITABINE [Suspect]
     Active Substance: CAPECITABINE
     Dosage: 1500 MILLIGRAM, BID
     Route: 048
  44. CAPECITABINE [Suspect]
     Active Substance: CAPECITABINE
     Dosage: 3000 MILLIGRAM, BID
     Route: 048
     Dates: start: 20170210, end: 20170728
  45. CAPECITABINE [Suspect]
     Active Substance: CAPECITABINE
     Dosage: 3000 MILLIGRAM, QD
     Route: 048
     Dates: start: 20170210
  46. CAPECITABINE [Suspect]
     Active Substance: CAPECITABINE
     Dosage: 3000 MILLIGRAM, QD
     Route: 048
  47. CAPECITABINE [Suspect]
     Active Substance: CAPECITABINE
     Dosage: 3000 MILLIGRAM, BID/10-FEB-2017
     Route: 048
     Dates: end: 20170728
  48. CAPECITABINE [Suspect]
     Active Substance: CAPECITABINE
     Dosage: 1500 MILLIGRAM, BID/10-FEB-2017
     Route: 048
     Dates: end: 20170728
  49. CAPECITABINE [Suspect]
     Active Substance: CAPECITABINE
     Dosage: (DOSE FORM: 82)
     Route: 048
  50. CAPECITABINE [Suspect]
     Active Substance: CAPECITABINE
     Dosage: 3000 MILLIGRAM, QD, (DOSE FORM: 82)
     Route: 048
  51. CAPECITABINE [Suspect]
     Active Substance: CAPECITABINE
     Dosage: 1500 MG, QD,  (245)/10-FEB-2017
     Route: 048
     Dates: end: 20170728
  52. CAPECITABINE [Suspect]
     Active Substance: CAPECITABINE
     Dosage: 3000 MILLIGRAM, QD
     Route: 048
  53. CAPECITABINE [Suspect]
     Active Substance: CAPECITABINE
     Dosage: 1500 MILLIGRAM
     Route: 048
  54. CAPECITABINE [Suspect]
     Active Substance: CAPECITABINE
     Dosage: 3000 MILLIGRAM, QD/10-FEB-2017
     Route: 048
  55. CAPECITABINE [Suspect]
     Active Substance: CAPECITABINE
     Dosage: UNK
     Route: 065
  56. CAPECITABINE [Suspect]
     Active Substance: CAPECITABINE
     Dosage: 1500 MILLIGRAM, QD, 10-FEB-2017
     Route: 048
     Dates: end: 20170728
  57. CAPECITABINE [Suspect]
     Active Substance: CAPECITABINE
     Dosage: ADDITIONAL INFO ON DRUG
     Route: 048
     Dates: end: 20170728
  58. CAPECITABINE [Suspect]
     Active Substance: CAPECITABINE
     Dosage: 3000 MILLIGRAM, QD, (EVERY 0.5 DAY)
     Route: 048
     Dates: end: 20170728
  59. CAPECITABINE [Suspect]
     Active Substance: CAPECITABINE
     Dosage: 3000 MILLIGRAM, QD/10-FEB-2017
     Route: 048
     Dates: end: 20170728
  60. CAPECITABINE [Suspect]
     Active Substance: CAPECITABINE
     Dosage: (DOSE FORM: 82) ( INTRAVENTRICULAR TABLET)
     Route: 065
  61. CAPECITABINE [Suspect]
     Active Substance: CAPECITABINE
     Dosage: 1500 MILLIGRAM, QD/10-FEB-2017
     Route: 048
     Dates: end: 20170728
  62. CAPECITABINE [Suspect]
     Active Substance: CAPECITABINE
     Dosage: (3000MG ONCE DAILY)/10-FEB-2017
     Route: 048
     Dates: end: 20170728
  63. CAPECITABINE [Suspect]
     Active Substance: CAPECITABINE
     Dosage: 3000 MILLIGRAM, (DOSE FORM: 245)
     Route: 048
  64. CAPECITABINE [Suspect]
     Active Substance: CAPECITABINE
     Dosage: 1500 MILLIGRAM, BID, (FREQUENCY: 0.5 DAY)
     Route: 048
  65. CAPECITABINE [Suspect]
     Active Substance: CAPECITABINE
     Dosage: 3000 MILLIGRAM, QD, 1500 MILLIGRAM, BID
     Route: 048
  66. CAPECITABINE [Suspect]
     Active Substance: CAPECITABINE
     Dosage: 3000 MILLIGRAM, QD, 1500 MILLIGRAM, BID
     Route: 048
  67. CAPECITABINE [Suspect]
     Active Substance: CAPECITABINE
     Dosage: (DOSE FORM: 82) 10-FEB-2017
     Route: 048
     Dates: end: 20170728
  68. CAPECITABINE [Suspect]
     Active Substance: CAPECITABINE
     Dosage: 3000 MILLIGRAM, BID/10-FEB-2017
     Route: 048
     Dates: end: 20170728
  69. CAPECITABINE [Suspect]
     Active Substance: CAPECITABINE
     Dosage: (6000 MILLIGRAM DAILY; 3000 MILLIGRAM, BID)
     Route: 048
     Dates: start: 20170210, end: 20170728
  70. CAPECITABINE [Suspect]
     Active Substance: CAPECITABINE
     Dosage: 6000 MG (3000 MG DAILY; 1500 MG, BID)
     Route: 048
     Dates: start: 20170210, end: 20170727
  71. DOCETAXEL [Suspect]
     Active Substance: DOCETAXEL
     Indication: Breast cancer metastatic
     Dosage: 108 MILLIGRAM, BIWEEKLY
     Route: 042
     Dates: start: 20150602, end: 20150602
  72. DOCETAXEL [Suspect]
     Active Substance: DOCETAXEL
     Indication: HER2 positive breast cancer
     Dosage: 86 MILLIGRAM, Q3W, 3WEEK/29-JUN-2015
     Route: 042
     Dates: end: 20150720
  73. DOCETAXEL [Suspect]
     Active Substance: DOCETAXEL
     Dosage: 86 MILLIGRAM, Q3WK, 29-JUN-2015
     Route: 042
     Dates: end: 20150720
  74. DOCETAXEL [Suspect]
     Active Substance: DOCETAXEL
     Dosage: 80 MILLIGRAM, Q3W
     Route: 065
     Dates: start: 20150602, end: 20150602
  75. DOCETAXEL [Suspect]
     Active Substance: DOCETAXEL
     Dosage: 80 MILLIGRAM, Q3W 29-JUN-2015
     Route: 042
     Dates: end: 20150720
  76. DOCETAXEL [Suspect]
     Active Substance: DOCETAXEL
     Dosage: DOSE MODIFIED/02-JUN-2015
     Route: 042
     Dates: start: 20150602, end: 20150602
  77. DOCETAXEL [Suspect]
     Active Substance: DOCETAXEL
     Dosage: 108 MG, Q3W
     Route: 042
  78. DOCETAXEL [Suspect]
     Active Substance: DOCETAXEL
     Dosage: Q3WK,DISCONTINUED (DOSE FORM:16)/29-JUN-2015
     Route: 042
     Dates: end: 20150720
  79. DOCETAXEL [Suspect]
     Active Substance: DOCETAXEL
     Dosage: 80 MILLIGRAM/29-JUN-2015
     Route: 065
     Dates: start: 20150602, end: 20150602
  80. DOCETAXEL [Suspect]
     Active Substance: DOCETAXEL
     Dosage: 80 MG, Q3W (DOSE DISCONTINUED)/29-JUN-2015
     Route: 042
     Dates: start: 20150629, end: 20150720
  81. DOCETAXEL [Suspect]
     Active Substance: DOCETAXEL
     Dosage: 86 MILLIGRAM, Q3W, DOSE
     Route: 042
     Dates: start: 20150629, end: 20150720
  82. DOCETAXEL [Suspect]
     Active Substance: DOCETAXEL
     Dosage: 108 MILLIGRAM, Q3W,DOSE MODIFIED/02-JUN-2015
     Route: 042
     Dates: end: 20150602
  83. DOCETAXEL [Suspect]
     Active Substance: DOCETAXEL
     Dosage: UNK
     Route: 042
     Dates: start: 20150629
  84. VINORELBINE [Suspect]
     Active Substance: VINORELBINE TARTRATE
     Indication: HER2 positive breast cancer
     Dosage: 60 MILLIGRAM
     Route: 048
     Dates: start: 20180503, end: 20180608
  85. VINORELBINE [Suspect]
     Active Substance: VINORELBINE TARTRATE
     Indication: Breast cancer metastatic
     Dosage: 60 MILLIGRAM
     Route: 048
     Dates: start: 20180608, end: 20180810
  86. VINORELBINE [Suspect]
     Active Substance: VINORELBINE TARTRATE
     Dosage: 60 MILLIGRAM
     Route: 048
  87. VINORELBINE [Suspect]
     Active Substance: VINORELBINE TARTRATE
     Dosage: 60 MILLIGRAM
     Route: 048
     Dates: start: 20180530, end: 20180608
  88. PERTUZUMAB [Suspect]
     Active Substance: PERTUZUMAB
     Indication: HER2 positive breast cancer
     Dosage: 420 MILLIGRAM, Q3W
     Route: 042
     Dates: start: 20150622, end: 20151102
  89. PERTUZUMAB [Suspect]
     Active Substance: PERTUZUMAB
     Indication: Breast cancer metastatic
     Dosage: 840 MILLIGRAM, Q3W (1 DF)
     Route: 042
  90. PERTUZUMAB [Suspect]
     Active Substance: PERTUZUMAB
     Dosage: 1 DOSAGE FORM, Q3W
     Route: 042
  91. PERTUZUMAB [Suspect]
     Active Substance: PERTUZUMAB
     Dosage: UNK, Q3WK, DOSE REDUCED
     Route: 042
  92. PERTUZUMAB [Suspect]
     Active Substance: PERTUZUMAB
     Dosage: 840 MILLIGRAM,LOADING CASE
     Route: 042
  93. PERTUZUMAB [Suspect]
     Active Substance: PERTUZUMAB
     Dosage: 420 MILLIGRAM, Q3W,TARGETED THERAPY
     Route: 042
  94. PERTUZUMAB [Suspect]
     Active Substance: PERTUZUMAB
     Dosage: 420 MILLIGRAM, Q3W,TARGETED THERAPY
     Route: 042
     Dates: end: 20151102
  95. PERTUZUMAB [Suspect]
     Active Substance: PERTUZUMAB
     Dosage: 420 MILLIGRAM, Q3W,TARGETED THERAPY
     Route: 042
  96. PERTUZUMAB [Suspect]
     Active Substance: PERTUZUMAB
     Dosage: TARGETED THERAPY (DOSE FROM: 230)/22-JUN-2015
     Route: 042
     Dates: end: 20151102
  97. PERTUZUMAB [Suspect]
     Active Substance: PERTUZUMAB
     Dosage: TARGETED THERAPY/22-JUN-2015
     Route: 042
     Dates: end: 20150622
  98. PERTUZUMAB [Suspect]
     Active Substance: PERTUZUMAB
     Dosage: UNK, Q3WK, DOSE REDUCED
     Route: 042
  99. PERTUZUMAB [Suspect]
     Active Substance: PERTUZUMAB
     Dosage: 420 MG, Q3W (DOSE FORM: 230)
     Route: 042
  100. PERTUZUMAB [Suspect]
     Active Substance: PERTUZUMAB
     Dosage: UNK, Q3WK, DOSE REDUCED
     Route: 042
     Dates: end: 20151102
  101. PERTUZUMAB [Suspect]
     Active Substance: PERTUZUMAB
     Dosage: TARGETED THERAPY/22-JUN-2015
     Route: 042
     Dates: end: 20151102
  102. ADO-TRASTUZUMAB EMTANSINE [Suspect]
     Active Substance: ADO-TRASTUZUMAB EMTANSINE
     Indication: HER2 positive breast cancer
     Dosage: 140 MILLIGRAM, Q3W
     Route: 042
     Dates: end: 20160215
  103. ADO-TRASTUZUMAB EMTANSINE [Suspect]
     Active Substance: ADO-TRASTUZUMAB EMTANSINE
     Indication: Breast cancer metastatic
     Dosage: 172 MILLIGRAM, BIWEEKLY
     Route: 042
     Dates: start: 20151201, end: 20151221
  104. ADO-TRASTUZUMAB EMTANSINE [Suspect]
     Active Substance: ADO-TRASTUZUMAB EMTANSINE
     Dosage: 140 MILLIGRAM,Q3W
     Route: 042
     Dates: start: 20160215, end: 20160215
  105. ADO-TRASTUZUMAB EMTANSINE [Suspect]
     Active Substance: ADO-TRASTUZUMAB EMTANSINE
     Dosage: 140 MILLIGRAM, Q3W
     Route: 042
  106. ADO-TRASTUZUMAB EMTANSINE [Suspect]
     Active Substance: ADO-TRASTUZUMAB EMTANSINE
     Dosage: 172 MILLIGRAM, Q3W
     Route: 042
     Dates: start: 20151201
  107. ADO-TRASTUZUMAB EMTANSINE [Suspect]
     Active Substance: ADO-TRASTUZUMAB EMTANSINE
     Dosage: INFUSION, SOLUTION
     Route: 042
  108. ADO-TRASTUZUMAB EMTANSINE [Suspect]
     Active Substance: ADO-TRASTUZUMAB EMTANSINE
     Dosage: 140 MILLIGRAM, Q3W/01-DEC-2015
     Route: 042
     Dates: end: 20160215
  109. ADO-TRASTUZUMAB EMTANSINE [Suspect]
     Active Substance: ADO-TRASTUZUMAB EMTANSINE
     Dosage: 1 DOSAGE FORM, Q3W
     Route: 065
  110. ADO-TRASTUZUMAB EMTANSINE [Suspect]
     Active Substance: ADO-TRASTUZUMAB EMTANSINE
     Dosage: 172 MILLIGRAM, Q3W
     Route: 042
  111. ADO-TRASTUZUMAB EMTANSINE [Suspect]
     Active Substance: ADO-TRASTUZUMAB EMTANSINE
     Dosage: 140 MILLIGRAM, Q3W/15-FEB-2016
     Route: 042
     Dates: end: 20160215
  112. ADO-TRASTUZUMAB EMTANSINE [Suspect]
     Active Substance: ADO-TRASTUZUMAB EMTANSINE
     Dosage: 140 MILLIGRAM, Q3W
     Route: 042
     Dates: start: 20151201, end: 20160215
  113. ADO-TRASTUZUMAB EMTANSINE [Suspect]
     Active Substance: ADO-TRASTUZUMAB EMTANSINE
     Dosage: 172 MILLIGRAM, Q3W/01-DEC-2015
     Route: 042
     Dates: end: 20151221
  114. ADO-TRASTUZUMAB EMTANSINE [Suspect]
     Active Substance: ADO-TRASTUZUMAB EMTANSINE
     Dosage: 172 MILLIGRAM, Q3W/01-DEC-2015
     Route: 042
  115. ADO-TRASTUZUMAB EMTANSINE [Suspect]
     Active Substance: ADO-TRASTUZUMAB EMTANSINE
     Dosage: 172 MILLIGRAM, Q3W
     Route: 042
     Dates: start: 20151201, end: 20160215
  116. ADO-TRASTUZUMAB EMTANSINE [Suspect]
     Active Substance: ADO-TRASTUZUMAB EMTANSINE
     Dosage: UNK, Q3W, DOSE REDUCED
     Route: 065
  117. ERIBULIN [Suspect]
     Active Substance: ERIBULIN
     Indication: HER2 positive breast cancer
     Dosage: 1.5 MILLIGRAM,Q3W
     Route: 042
     Dates: start: 20160411, end: 20160624
  118. ERIBULIN [Suspect]
     Active Substance: ERIBULIN
     Indication: Breast cancer metastatic
     Dosage: 1.5 MILLIGRAM, Q3W
     Route: 042
  119. ERIBULIN [Suspect]
     Active Substance: ERIBULIN
     Dosage: 1.5 MILLIGRAM
     Route: 042
  120. ERIBULIN [Suspect]
     Active Substance: ERIBULIN
     Dosage: 1.5 MILLIGRAM, Q3W
     Route: 042
     Dates: start: 20160411
  121. ERIBULIN [Suspect]
     Active Substance: ERIBULIN
     Dosage: 1.5 MILLIGRAM, Q3W
     Route: 042
  122. ERIBULIN [Suspect]
     Active Substance: ERIBULIN
     Dosage: 1.5 MILLIGRAM, Q3W
     Route: 042
  123. ERIBULIN [Suspect]
     Active Substance: ERIBULIN
     Dosage: 1.5 MILLIGRAM, Q3W
     Route: 042
  124. ERIBULIN [Suspect]
     Active Substance: ERIBULIN
     Dosage: 1.5 MILLIGRAM, Q3W
     Route: 042
  125. ERIBULIN [Suspect]
     Active Substance: ERIBULIN
     Dosage: 1.5 MILLIGRAM, Q3W/11-APR-2016
     Route: 042
  126. ERIBULIN [Suspect]
     Active Substance: ERIBULIN
     Dosage: 1.5 MILLIGRAM, Q3W/11-APR-2016
     Route: 065
  127. ERIBULIN [Suspect]
     Active Substance: ERIBULIN
     Dosage: 1.5 MILLIGRAM, Q3W/11-APR-2016
     Route: 042
  128. ERIBULIN [Suspect]
     Active Substance: ERIBULIN
     Dosage: 1.5 MILLIGRAM, Q3W/11-APR-2016
     Route: 042
  129. ERIBULIN [Suspect]
     Active Substance: ERIBULIN
     Dosage: 1.5 MILLIGRAM, Q2W
     Route: 042
  130. ERIBULIN [Suspect]
     Active Substance: ERIBULIN
     Dosage: 1.5 MILLIGRAM, Q3W
     Route: 042
     Dates: start: 20160624, end: 20160624
  131. ERIBULIN [Suspect]
     Active Substance: ERIBULIN
     Dosage: 1.5 MILLIGRAM, Q3W
     Route: 042
  132. ERIBULIN [Suspect]
     Active Substance: ERIBULIN
     Dosage: 1.5 MILLIGRAM, Q2W
     Route: 042
  133. ERIBULIN [Suspect]
     Active Substance: ERIBULIN
     Dosage: DOSE DISCONTINUED/29-JUN-2015
     Route: 042
     Dates: end: 20150720
  134. ERIBULIN [Suspect]
     Active Substance: ERIBULIN
     Dosage: DOSE MODIFIED (DOSE FORM: 16)/02-JUN-2015
     Route: 042
     Dates: end: 20150602
  135. ERIBULIN [Suspect]
     Active Substance: ERIBULIN
     Dosage: (DOSE DISCONTINUED)/29-JUN-2015
     Route: 042
     Dates: end: 20150720
  136. ERIBULIN [Suspect]
     Active Substance: ERIBULIN
     Dosage: 1.5 MILLIGRAM, Q3W/11-APR-2016
     Route: 042
     Dates: end: 20160411
  137. ERIBULIN [Suspect]
     Active Substance: ERIBULIN
     Dosage: UNK
     Route: 065
  138. NERATINIB [Suspect]
     Active Substance: NERATINIB
     Indication: HER2 positive breast cancer
     Dosage: 40 MILLIGRAM, QD
     Route: 048
     Dates: start: 20170901, end: 20180314
  139. NERATINIB [Suspect]
     Active Substance: NERATINIB
     Indication: Breast cancer metastatic
     Dosage: 40 MILLIGRAM, QD
     Route: 048
  140. NERATINIB [Suspect]
     Active Substance: NERATINIB
     Dosage: 40 MILLIGRAM
     Route: 048
  141. NERATINIB [Suspect]
     Active Substance: NERATINIB
     Dosage: 240 MILLIGRAM, QD/23-FEB-2018
     Route: 065
     Dates: end: 20180420
  142. NERATINIB [Suspect]
     Active Substance: NERATINIB
     Dosage: 240 MILLIGRAM, QD
     Route: 048
  143. NERATINIB [Suspect]
     Active Substance: NERATINIB
     Dosage: 40 MILLIGRAM, QD/01-SEP-2017
     Route: 048
  144. NERATINIB [Suspect]
     Active Substance: NERATINIB
     Dosage: 240 MILLIGRAM, QD
     Route: 048
     Dates: start: 20170901, end: 20180216
  145. NERATINIB [Suspect]
     Active Substance: NERATINIB
     Dosage: 240 MILLIGRAM, QD
     Route: 065
     Dates: start: 20180223, end: 20180402
  146. NERATINIB [Suspect]
     Active Substance: NERATINIB
     Dosage: 240 MILLIGRAM, QD
     Route: 048
     Dates: start: 20170901, end: 20180314
  147. NERATINIB [Suspect]
     Active Substance: NERATINIB
     Dosage: 240 MILLIGRAM, QD/01-SEP-2017
     Route: 048
     Dates: end: 20180314
  148. NERATINIB [Suspect]
     Active Substance: NERATINIB
     Dosage: INTRAVENTRICULAR TABLET
     Route: 048
  149. NERATINIB [Suspect]
     Active Substance: NERATINIB
     Dosage: UNK
     Route: 065
  150. NERATINIB [Suspect]
     Active Substance: NERATINIB
     Dosage: 240 MILLIGRAM/01-SEP-2017
     Route: 048
     Dates: end: 20180216
  151. NERATINIB [Suspect]
     Active Substance: NERATINIB
     Dosage: 240 MILLIGRAM, QD/23-FEB-2018
     Route: 065
     Dates: end: 20180402
  152. NERATINIB [Suspect]
     Active Substance: NERATINIB
     Indication: Breast cancer metastatic
     Dosage: 40 MILLIGRAM, QD
     Route: 048
  153. NERATINIB [Suspect]
     Active Substance: NERATINIB
     Indication: HER2 positive breast cancer
     Dosage: 240 MILLIGRAM, QD
     Route: 048
  154. NERATINIB [Suspect]
     Active Substance: NERATINIB
     Dosage: 40 MILLIGRAM, QD
     Route: 048
     Dates: start: 20170901, end: 20180314
  155. NERATINIB [Suspect]
     Active Substance: NERATINIB
     Dosage: 40 MILLIGRAM
     Route: 048
  156. NERATINIB [Suspect]
     Active Substance: NERATINIB
     Dosage: 240 MILLIGRAM, QD
     Route: 048
     Dates: start: 20170901, end: 20180216
  157. NERATINIB [Suspect]
     Active Substance: NERATINIB
     Dosage: 40 MILLIGRAM, QD/01-SEP-2017
     Route: 048
  158. NERATINIB [Suspect]
     Active Substance: NERATINIB
     Dosage: 240 MILLIGRAM, QD
     Route: 065
     Dates: start: 20180223, end: 20180420
  159. MUPIROCIN [Concomitant]
     Active Substance: MUPIROCIN
     Indication: Prophylaxis
     Dosage: 2 PERCENT, QD
     Route: 061
     Dates: start: 20160620, end: 20160624
  160. MUPIROCIN [Concomitant]
     Active Substance: MUPIROCIN
     Dosage: 6 PERCENT, QD
     Route: 061
     Dates: start: 20160620, end: 20160624
  161. MUPIROCIN [Concomitant]
     Active Substance: MUPIROCIN
     Dosage: 2 PERCENT, QD
     Route: 061
     Dates: start: 20160620, end: 20160624
  162. MUPIROCIN [Concomitant]
     Active Substance: MUPIROCIN
     Dosage: 6 PERCENT, QD/20-JUN-2016
     Route: 061
     Dates: end: 20160624
  163. MUPIROCIN [Concomitant]
     Active Substance: MUPIROCIN
     Dosage: UNK UNK, TID/20-JUN-2016
     Route: 061
     Dates: end: 20160624
  164. MEROPENEM [Concomitant]
     Active Substance: MEROPENEM
     Indication: Lower respiratory tract infection
     Dosage: UNK
     Route: 042
     Dates: start: 20170215, end: 20170221
  165. POTASSIUM BICARBONATE\POTASSIUM CHLORIDE [Concomitant]
     Active Substance: POTASSIUM BICARBONATE\POTASSIUM CHLORIDE
     Indication: Nutritional supplementation
     Dosage: 2 DOSAGE FORM, QD,2 TABLETS EVERY DAY
     Route: 048
     Dates: start: 20150828, end: 20150830
  166. POTASSIUM BICARBONATE\POTASSIUM CHLORIDE [Concomitant]
     Active Substance: POTASSIUM BICARBONATE\POTASSIUM CHLORIDE
     Dosage: 1 DOSAGE FORM, QD (2 TABLETS EVERY DAY)
     Route: 048
     Dates: start: 20150828, end: 20150830
  167. DOMPERIDONE [Concomitant]
     Active Substance: DOMPERIDONE
     Indication: Product used for unknown indication
     Dosage: 10 MILLIGRAM, QD
     Route: 048
     Dates: start: 20160406, end: 20160421
  168. DOMPERIDONE [Concomitant]
     Active Substance: DOMPERIDONE
     Dosage: 30 MILLIGRAM, QD
     Route: 048
     Dates: start: 20160406, end: 20160421
  169. DOMPERIDONE [Concomitant]
     Active Substance: DOMPERIDONE
     Dosage: 10 MILLIGRAM (10 MG, EVERY 0.33 DAY)
     Route: 048
     Dates: start: 20160406, end: 20160421
  170. DOMPERIDONE [Concomitant]
     Active Substance: DOMPERIDONE
     Dosage: 30 MILLIGRAM, QD
     Route: 048
     Dates: start: 20160406, end: 20160421
  171. FILGRASTIM [Concomitant]
     Active Substance: FILGRASTIM
     Indication: Product used for unknown indication
     Dosage: 300 MICROGRAM, QD
     Route: 058
     Dates: start: 20150725, end: 20150730
  172. FILGRASTIM [Concomitant]
     Active Substance: FILGRASTIM
     Dosage: 3 DAYS STARTING ON DAYS 3 AND 11)/21-APR-2016
     Route: 058
     Dates: start: 20160421, end: 20160712
  173. CIPROFLOXACIN [Concomitant]
     Active Substance: CIPROFLOXACIN
     Dosage: 500 MILLIGRAM, QD
     Route: 048
     Dates: start: 20151218, end: 20151225
  174. CIPROFLOXACIN [Concomitant]
     Active Substance: CIPROFLOXACIN
     Dosage: 1000 MILLIGRAM, QD
     Route: 048
     Dates: start: 20151218, end: 20151225
  175. CIPROFLOXACIN [Concomitant]
     Active Substance: CIPROFLOXACIN
     Dosage: 1000 MILLIGRAM, QD CUMULATIVE DOSE: 4000MG
     Route: 048
     Dates: start: 20151218, end: 20151225
  176. LOPERAMIDE [Concomitant]
     Active Substance: LOPERAMIDE
     Indication: Diarrhoea
     Dosage: 2 MILLIGRAM, PRN/01-SEP-2017
     Route: 048
     Dates: start: 20170901, end: 20171124
  177. LOPERAMIDE [Concomitant]
     Active Substance: LOPERAMIDE
     Dosage: UNK , PRN/01-SEP-2017
     Route: 048
     Dates: start: 20170901, end: 20171124
  178. GENTAMICIN [Concomitant]
     Active Substance: GENTAMICIN
     Indication: Lower respiratory tract infection
     Dosage: 13-FEB-2017
     Route: 042
     Dates: start: 20170213, end: 201702
  179. GENTAMICIN [Concomitant]
     Active Substance: GENTAMICIN
     Dosage: 13-FEB-2017
     Route: 042
     Dates: end: 201702
  180. FOLIC ACID [Concomitant]
     Active Substance: FOLIC ACID
     Indication: Blood folate decreased
     Dosage: 5 MILLIGRAM, QD
     Route: 048
     Dates: start: 20150828, end: 201708
  181. FOLIC ACID [Concomitant]
     Active Substance: FOLIC ACID
     Dosage: 5 MILLIGRAM, QD/28-AUG-2015
     Route: 048
     Dates: start: 20150828
  182. AMOXICILLIN\CLAVULANATE POTASSIUM [Concomitant]
     Active Substance: AMOXICILLIN\CLAVULANATE POTASSIUM
     Indication: Lower respiratory tract infection
     Dosage: 625 MILLIGRAM, QD
     Route: 048
     Dates: start: 20170222, end: 20170228
  183. AMOXICILLIN\CLAVULANATE POTASSIUM [Concomitant]
     Active Substance: AMOXICILLIN\CLAVULANATE POTASSIUM
     Dosage: 1875 MILLIGRAM, QD/22-FEB-2017
     Route: 048
     Dates: end: 20170228
  184. AMOXICILLIN\CLAVULANATE POTASSIUM [Concomitant]
     Active Substance: AMOXICILLIN\CLAVULANATE POTASSIUM
     Dosage: 625 MILLIGRAM, 0.33 DAY
     Route: 048
     Dates: start: 20170222, end: 20170228
  185. AMLODIPINE [Concomitant]
     Active Substance: AMLODIPINE BESYLATE
     Dosage: 10 MILLIGRAM, DOSAGE FORM 245
     Route: 048
  186. AMLODIPINE [Concomitant]
     Active Substance: AMLODIPINE BESYLATE
     Dosage: 10 MILLIGRAM
     Route: 065
  187. AMLODIPINE [Concomitant]
     Active Substance: AMLODIPINE BESYLATE
     Dosage: 10 MILLIGRAM
     Route: 065
  188. PIPERACILLIN SODIUM\TAZOBACTAM SODIUM [Concomitant]
     Active Substance: PIPERACILLIN SODIUM\TAZOBACTAM SODIUM
     Indication: Lower respiratory tract infection
     Dosage: UNK
     Route: 042
     Dates: start: 20170213, end: 20170215
  189. CLAVULANATE POTASSIUM [Concomitant]
     Active Substance: CLAVULANATE POTASSIUM
     Indication: Lower respiratory tract infection
     Dosage: 1875 MILLIGRAM, QD/22-FEB-2017
     Route: 048
     Dates: end: 20170228
  190. CLAVULANATE POTASSIUM [Concomitant]
     Active Substance: CLAVULANATE POTASSIUM
     Dosage: 625 MILLIGRAM, QD/22-FEB-2017
     Route: 048
     Dates: end: 20170228
  191. PIPERACILLIN AND TAZOBACTAM [Concomitant]
     Active Substance: PIPERACILLIN SODIUM\TAZOBACTAM SODIUM
     Indication: Lower respiratory tract infection
     Dosage: 13-FEB-2017
     Route: 065
     Dates: end: 20170215
  192. POTASSIUM [Concomitant]
     Active Substance: POTASSIUM
     Indication: Nutritional supplementation
     Dosage: 2 TABLETS EVERY DAY/28-AUG-2015
     Route: 048
     Dates: end: 20150830
  193. AMOXICILLIN\CLAVULANATE POTASSIUM [Concomitant]
     Active Substance: AMOXICILLIN\CLAVULANATE POTASSIUM
     Indication: Lower respiratory tract infection
     Dosage: 1875 MILLIGRAM, QD
     Route: 048
     Dates: start: 20170222, end: 20170228
  194. AMOXICILLIN\CLAVULANATE POTASSIUM [Concomitant]
     Active Substance: AMOXICILLIN\CLAVULANATE POTASSIUM
     Dosage: 625 MILLIGRAM, QD
     Route: 048
     Dates: start: 20170222, end: 20170228
  195. POTASSIUM BICARBONATE\POTASSIUM CHLORIDE [Concomitant]
     Active Substance: POTASSIUM BICARBONATE\POTASSIUM CHLORIDE
     Indication: Nutritional supplementation
     Dosage: ,2 TABLETS EVERY DAY/28-AUG-2015
     Route: 048
     Dates: start: 20150828, end: 20150830
  196. POTASSIUM BICARBONATE\POTASSIUM CHLORIDE [Concomitant]
     Active Substance: POTASSIUM BICARBONATE\POTASSIUM CHLORIDE
     Dosage: (2 TABLETS EVERY DAY)/28-AUG-2015
     Route: 048
     Dates: start: 20150828, end: 20150830
  197. HUMAN RED BLOOD CELL [Concomitant]
     Active Substance: HUMAN RED BLOOD CELL
     Indication: Product used for unknown indication
     Dosage: UNK, QD, 2 UNIT
     Route: 065
     Dates: start: 20180526, end: 20180526
  198. HUMAN RED BLOOD CELL [Concomitant]
     Active Substance: HUMAN RED BLOOD CELL
     Dosage: UNK, QD, 2 UNIT
     Route: 065
     Dates: start: 20160702, end: 20160702
  199. GRANULOCYTE COLONY-STIMULATING FACTOR NOS [Concomitant]
     Active Substance: GRANULOCYTE COLONY-STIMULATING FACTOR NOS
     Dosage: 300 MICROGRAM, (QD FOR 3 DAY)
     Route: 065
     Dates: start: 20160421, end: 20160721
  200. GRANULOCYTE COLONY-STIMULATING FACTOR NOS [Concomitant]
     Active Substance: GRANULOCYTE COLONY-STIMULATING FACTOR NOS
     Dosage: 300 MICROGRAM, QD (300 UG, QD (DOSE FORM: 120))
     Route: 065
     Dates: start: 20150725, end: 20150730

REACTIONS (30)
  - Throat irritation [Fatal]
  - Disease progression [Fatal]
  - Neuropathy peripheral [Fatal]
  - Alopecia [Fatal]
  - Condition aggravated [Fatal]
  - Hypoaesthesia [Fatal]
  - Neutropenia [Fatal]
  - Palpitations [Fatal]
  - Intentional product misuse [Fatal]
  - Off label use [Fatal]
  - Product use issue [Fatal]
  - Folate deficiency [Fatal]
  - Dysphonia [Fatal]
  - Tremor [Fatal]
  - Colitis [Fatal]
  - Hyperchlorhydria [Fatal]
  - Lethargy [Fatal]
  - Odynophagia [Fatal]
  - Pancytopenia [Fatal]
  - Decreased appetite [Fatal]
  - Pyrexia [Fatal]
  - Fatigue [Fatal]
  - Thrombocytopenia [Fatal]
  - Diarrhoea [Fatal]
  - Weight decreased [Fatal]
  - Dyspepsia [Fatal]
  - Rash pruritic [Fatal]
  - Mucosal inflammation [Fatal]
  - Cough [Fatal]
  - Nausea [Fatal]

NARRATIVE: CASE EVENT DATE: 20150601
